FAERS Safety Report 24078573 (Version 1)
Quarter: 2024Q3

REPORT INFORMATION
  Report Type: Spontaneous
  Country: US (occurrence: None)
  Receive Date: 20240710
  Receipt Date: 20240710
  Transmission Date: 20241017
  Serious: Yes (Other)
  Sender: Public
  Company Number: None

PATIENT
  Age: 71 Year
  Sex: Female
  Weight: 58.05 kg

DRUGS (6)
  1. CREON [Suspect]
     Active Substance: PANCRELIPASE AMYLASE\PANCRELIPASE LIPASE\PANCRELIPASE PROTEASE
     Indication: Pancreatic enzymes decreased
     Dosage: OTHER STRENGTH : UNKNOWN;?OTHER QUANTITY : 1 CAPSULE(S);?OTHER FREQUENCY : 1/SNACK 2/MEAL 9/D;?
     Route: 048
     Dates: start: 20240623, end: 20240710
  2. LISINOPRIL [Concomitant]
     Active Substance: LISINOPRIL
  3. PAROXETINE [Concomitant]
     Active Substance: PAROXETINE
  4. LEVOTHYROXINE [Concomitant]
     Active Substance: LEVOTHYROXINE\LEVOTHYROXINE SODIUM
  5. CALCIUM [Concomitant]
     Active Substance: CALCIUM
  6. VITAMIN D WITH K3 [Concomitant]

REACTIONS (12)
  - Gastrointestinal pain [None]
  - Dyspepsia [None]
  - Nausea [None]
  - Vomiting [None]
  - Diarrhoea [None]
  - Dizziness [None]
  - Illness [None]
  - Flatulence [None]
  - Abnormal faeces [None]
  - Fall [None]
  - Fatigue [None]
  - Asthenia [None]

NARRATIVE: CASE EVENT DATE: 20240709
